FAERS Safety Report 11371914 (Version 6)
Quarter: 2016Q3

REPORT INFORMATION
  Report Type: Report from Study
  Country: CA (occurrence: CA)
  Receive Date: 20150812
  Receipt Date: 20160711
  Transmission Date: 20161109
  Serious: Yes (Other)
  Sender: FDA-Public Use
  Company Number: PHHY2014CA021135

PATIENT
  Age: 66 Year
  Sex: Female

DRUGS (2)
  1. SANDOSTATIN LAR DEPOT [Suspect]
     Active Substance: OCTREOTIDE ACETATE
     Indication: NEUROENDOCRINE TUMOUR
     Dosage: 30 MG, QMO (EVERY 4 WEEKS)
     Route: 030
     Dates: start: 20140116
  2. ACCUPRIL [Concomitant]
     Active Substance: QUINAPRIL HYDROCHLORIDE
     Indication: HYPERTENSION
     Dosage: 20 MG, QD
     Route: 065

REACTIONS (12)
  - Blood pressure increased [Unknown]
  - Blood pressure fluctuation [Unknown]
  - Heart rate irregular [Unknown]
  - Body temperature decreased [Unknown]
  - Heart rate increased [Unknown]
  - Headache [Unknown]
  - Hepatic lesion [Recovering/Resolving]
  - Nervousness [Unknown]
  - Blood glucose increased [Unknown]
  - Palpitations [Unknown]
  - Anxiety [Recovering/Resolving]
  - Alopecia [Unknown]

NARRATIVE: CASE EVENT DATE: 20140217
